FAERS Safety Report 5640979-3 (Version None)
Quarter: 2008Q1

REPORT INFORMATION
  Report Type: 
  Country: None (occurrence: None)
  Receive Date: 20080227
  Receipt Date: 20080219
  Transmission Date: 20080703
  Serious: Yes (Disabling)
  Sender: FDA-Public Use
  Company Number: US-WYE-H02671908

PATIENT
  Sex: Female

DRUGS (5)
  1. EFFEXOR XR [Suspect]
     Indication: MENOPAUSAL SYMPTOMS
     Dosage: 37.5 MG, FREQUENCY NOT SPECIFED
     Route: 048
     Dates: start: 20080129, end: 20080101
  2. EFFEXOR XR [Suspect]
     Dosage: 75 MG, FREQUENCY NOT SPECIFIED
     Route: 048
     Dates: start: 20080101, end: 20080101
  3. EFFEXOR XR [Suspect]
     Dosage: ^BEGAN TAPERING AT 37.5 MG^
     Route: 048
     Dates: start: 20080212
  4. TENORMIN [Concomitant]
     Dosage: UNKNOWN
  5. HYZAAR [Concomitant]
     Dosage: UNKNOWN

REACTIONS (6)
  - AGITATION [None]
  - DEPRESSED MOOD [None]
  - DRUG WITHDRAWAL SYNDROME [None]
  - FATIGUE [None]
  - INSOMNIA [None]
  - SLEEP DISORDER [None]
